FAERS Safety Report 9040753 (Version 1)
Quarter: 2013Q1

REPORT INFORMATION
  Report Type: Report from Study
  Country: US (occurrence: US)
  Receive Date: 20130129
  Receipt Date: 20130129
  Transmission Date: 20140127
  Serious: Yes (Other)
  Sender: FDA-Public Use
  Company Number: US-ABBOTT-13P-163-1038541-00

PATIENT
  Sex: Male
  Weight: 152.09 kg

DRUGS (13)
  1. HUMIRA [Suspect]
     Indication: PSORIATIC ARTHROPATHY
     Route: 058
     Dates: start: 20120515, end: 20120703
  2. HUMIRA [Suspect]
     Indication: PSORIASIS
     Route: 058
     Dates: start: 20120710, end: 20130115
  3. REMICADE [Suspect]
     Indication: PSORIATIC ARTHROPATHY
     Dates: start: 2008, end: 20120428
  4. REMICADE [Suspect]
     Indication: PSORIASIS
  5. ENBREL [Suspect]
     Indication: PSORIASIS
     Dates: start: 2004, end: 2008
  6. RAPTIVA [Suspect]
     Indication: PSORIASIS
     Dates: start: 2002, end: 2004
  7. SINGULAR [Concomitant]
     Indication: ASTHMA
  8. RESCUE INHALER [Concomitant]
     Indication: ASTHMA
  9. UNKNOWN MEDS [Concomitant]
     Indication: HYPERTENSION
  10. PREVACID [Concomitant]
     Indication: GASTROOESOPHAGEAL REFLUX DISEASE
  11. WELLBUTRIN [Concomitant]
     Indication: DEPRESSION
  12. ZOLOFT [Concomitant]
     Indication: ANXIETY
  13. KLONOPIN [Concomitant]
     Indication: IRRITABILITY

REACTIONS (5)
  - Skin lesion [Not Recovered/Not Resolved]
  - Skin haemorrhage [Not Recovered/Not Resolved]
  - Primary amyloidosis [Not Recovered/Not Resolved]
  - Pruritus [Not Recovered/Not Resolved]
  - Pain of skin [Not Recovered/Not Resolved]
